FAERS Safety Report 9249008 (Version 1)
Quarter: 2013Q1

REPORT INFORMATION
  Report Type: Spontaneous
  Country: US (occurrence: None)
  Receive Date: 20130305
  Receipt Date: 20130305
  Transmission Date: 20140127
  Serious: Yes (Hospitalization)
  Sender: FDA-Public Use
  Company Number: 163-21880-12100299

PATIENT
  Age: 59 Year
  Sex: Female

DRUGS (13)
  1. REVLIMID [Suspect]
     Indication: PLASMA CELL MYELOMA
     Dosage: 21 IN 21 D
     Route: 048
     Dates: start: 20100723, end: 20120926
  2. HYDROCODONE/ACETAMINOPHEN (REMEDEINE) [Concomitant]
  3. LEVOFLOXACIN (LEVOFLOXACIN) [Concomitant]
  4. POTASSIUM CHLORIDE (POTASSIUM CHLORIDE) [Concomitant]
  5. CLARITHROMYCIN (CLARITHROMYCIN) [Concomitant]
  6. TAMIFLU (OSELTAMIVIR) [Concomitant]
  7. CIPROFLOCACIN (CIPROFLOXACIN) [Concomitant]
  8. LORAZEPAM (LORAZEPAM) [Concomitant]
  9. ZOMETA (ZOLEDRONIC ACID) [Concomitant]
  10. DOXYCYCLINE (DOXYCYCLINE) [Concomitant]
  11. DEXAMETHASONE (DEXAMETHASONE) [Concomitant]
  12. VITAMINS [Concomitant]
  13. VALCYTE (VALGANCICLOVIR HYDROCHLORIDE) (VALGANCICLOVIR HYDROCHLORIDE) [Concomitant]

REACTIONS (3)
  - Neutropenia [None]
  - Anaemia [None]
  - Thrombocytopenia [None]
